FAERS Safety Report 10710609 (Version 1)
Quarter: 2015Q1

REPORT INFORMATION
  Report Type: Spontaneous
  Country: US (occurrence: US)
  Receive Date: 20150114
  Receipt Date: 20150114
  Transmission Date: 20150721
  Serious: Yes (Other)
  Sender: FDA-Public Use
  Company Number: US-SA-2015SA003602

PATIENT
  Age: 56 Year
  Sex: Male

DRUGS (3)
  1. MULTAQ [Interacting]
     Active Substance: DRONEDARONE
     Indication: ATRIAL FIBRILLATION
     Route: 065
  2. MULTAQ [Suspect]
     Active Substance: DRONEDARONE
     Indication: ATRIAL FIBRILLATION
     Dosage: ONE-HALF TABLET DURING THE DAY AND ONE TABLET AT NIGHT
     Route: 065
     Dates: start: 201409
  3. ZITHROMAX [Interacting]
     Active Substance: AZITHROMYCIN DIHYDRATE
     Indication: RESPIRATORY TRACT INFECTION
     Route: 065

REACTIONS (3)
  - Drug interaction [Unknown]
  - Respiratory tract infection [Unknown]
  - Somnolence [Unknown]
